FAERS Safety Report 24741341 (Version 1)
Quarter: 2024Q4

REPORT INFORMATION
  Report Type: Spontaneous
  Country: CN (occurrence: CN)
  Receive Date: 20241217
  Receipt Date: 20241217
  Transmission Date: 20250114
  Serious: Yes (Hospitalization, Other)
  Sender: TAKEDA
  Company Number: CN-HUTCHMED LIMITED-HMP2024CN02709

PATIENT
  Age: 56 Year
  Sex: Male
  Weight: 65 kg

DRUGS (4)
  1. FRUQUINTINIB [Suspect]
     Active Substance: FRUQUINTINIB
     Indication: Gastric cancer
     Dosage: 5 MILLIGRAM, QD
     Dates: start: 20240301, end: 20241118
  2. FRUQUINTINIB [Suspect]
     Active Substance: FRUQUINTINIB
     Indication: Brain neoplasm malignant
  3. NADROPARIN CALCIUM [Concomitant]
     Active Substance: NADROPARIN CALCIUM
     Indication: Coagulopathy
     Dosage: 4100 INTERNATIONAL UNIT, QD
     Dates: start: 20241111, end: 20241112
  4. VITAMINS [Concomitant]
     Active Substance: VITAMINS
     Indication: Malnutrition
     Dosage: 1 DOSAGE FORM, QD
     Dates: start: 20241112, end: 20241112

REACTIONS (5)
  - Coagulopathy [Recovering/Resolving]
  - Confusional state [Unknown]
  - Cerebral haemorrhage [Recovering/Resolving]
  - Asthenia [Unknown]
  - Off label use [Unknown]

NARRATIVE: CASE EVENT DATE: 20240301
